FAERS Safety Report 20024464 (Version 1)
Quarter: 2021Q4

REPORT INFORMATION
  Report Type: Spontaneous
  Country: AT (occurrence: AT)
  Receive Date: 20211102
  Receipt Date: 20211102
  Transmission Date: 20220303
  Serious: Yes (Hospitalization, Other)
  Sender: FDA-Public Use
  Company Number: AT-UCBSA-2021034435

PATIENT
  Age: 7 Year
  Sex: Female

DRUGS (9)
  1. LEVETIRACETAM [Suspect]
     Active Substance: LEVETIRACETAM
     Indication: Generalised tonic-clonic seizure
     Dosage: UNK
  2. CLOBAZAM [Concomitant]
     Active Substance: CLOBAZAM
     Indication: Generalised tonic-clonic seizure
     Dosage: UNK
  3. VALPROIC ACID [Concomitant]
     Active Substance: VALPROIC ACID
     Indication: Generalised tonic-clonic seizure
     Dosage: UNK
  4. CARBAMAZEPINE [Concomitant]
     Active Substance: CARBAMAZEPINE
     Indication: Generalised tonic-clonic seizure
     Dosage: UNK
  5. LAMOTRIGINE [Concomitant]
     Active Substance: LAMOTRIGINE
     Indication: Generalised tonic-clonic seizure
     Dosage: UNK
  6. PHENYTOIN [Concomitant]
     Active Substance: PHENYTOIN
     Indication: Generalised tonic-clonic seizure
     Dosage: UNK
  7. PHENYTOIN [Concomitant]
     Active Substance: PHENYTOIN
     Dosage: 3.8 MILLIGRAM/KILOGRAM (3.8 MG/KG IN 2 SINGLE DOSAGES IV/24 HOURS)
     Route: 042
  8. PHENYTOIN [Concomitant]
     Active Substance: PHENYTOIN
     Dosage: 5 MILLIGRAM/KILOGRAM (5 MG/KG IN 30 MINUTES)
  9. TOPIRAMATE [Concomitant]
     Active Substance: TOPIRAMATE
     Indication: Generalised tonic-clonic seizure
     Dosage: UNK

REACTIONS (6)
  - Status epilepticus [Recovering/Resolving]
  - Condition aggravated [Recovering/Resolving]
  - Motor dysfunction [Unknown]
  - Crying [Unknown]
  - Inappropriate affect [Unknown]
  - Sleep disorder [Unknown]
